FAERS Safety Report 10583595 (Version 1)
Quarter: 2014Q4

REPORT INFORMATION
  Report Type: Spontaneous
  Country: FR (occurrence: None)
  Receive Date: 20141112
  Receipt Date: 20141112
  Transmission Date: 20150529
  Serious: Yes (Hospitalization)
  Sender: FDA-Public Use
  Company Number: IMP_08087_2014

PATIENT
  Age: 81 Year
  Sex: Female

DRUGS (2)
  1. METFORMIN HCL [Suspect]
     Active Substance: METFORMIN HYDROCHLORIDE
     Indication: TYPE 2 DIABETES MELLITUS
     Dosage: 3000, [TOTAL DAILY DOSE]
  2. DIURETICS (UNKNOWN) [Concomitant]

REACTIONS (7)
  - Renal impairment [None]
  - Continuous haemodiafiltration [None]
  - Cardiovascular insufficiency [None]
  - Respiratory disorder [None]
  - Nervous system disorder [None]
  - Coma scale abnormal [None]
  - Lactic acidosis [None]
